FAERS Safety Report 7001386-4 (Version None)
Quarter: 2010Q3

REPORT INFORMATION
  Report Type: 
  Country: None (occurrence: None)
  Receive Date: 20100920
  Receipt Date: 20100216
  Transmission Date: 20110219
  Serious: Yes (Other)
  Sender: FDA-Public Use
  Company Number: US-ASTRAZENECA-2009UW20103

PATIENT
  Age: 563 Month
  Sex: Male

DRUGS (9)
  1. SEROQUEL [Suspect]
     Indication: SLEEP DISORDER
     Route: 048
     Dates: start: 20021001, end: 20051001
  2. BUSPAR [Concomitant]
     Indication: ANXIETY
  3. BUSPAR [Concomitant]
     Indication: DISTURBANCE IN ATTENTION
  4. LITHIUM [Concomitant]
     Indication: ANXIETY
  5. LITHIUM [Concomitant]
     Indication: DISTURBANCE IN ATTENTION
  6. ZYPREXA [Concomitant]
     Indication: ANXIETY
     Dates: start: 20000601, end: 20020401
  7. ZYPREXA [Concomitant]
     Indication: DISTURBANCE IN ATTENTION
     Dates: start: 20000601, end: 20020401
  8. ZOLOFT [Concomitant]
     Indication: ANXIETY
  9. ZOLOFT [Concomitant]
     Indication: DISTURBANCE IN ATTENTION

REACTIONS (5)
  - FATIGUE [None]
  - MALAISE [None]
  - OBESITY [None]
  - PANCREATITIS [None]
  - TYPE 2 DIABETES MELLITUS [None]
